FAERS Safety Report 5947950-2 (Version None)
Quarter: 2008Q4

REPORT INFORMATION
  Report Type: 
  Country: None (occurrence: None)
  Receive Date: 20081111
  Receipt Date: 20081007
  Transmission Date: 20090506
  Serious: No
  Sender: FDA-Public Use
  Company Number: A0750813A

PATIENT
  Age: 47 Year
  Sex: Female

DRUGS (3)
  1. TREXIMET [Suspect]
     Indication: MIGRAINE
     Dosage: 1TAB AS REQUIRED
     Route: 048
     Dates: start: 20080930
  2. MS CONTIN [Concomitant]
  3. TOPAMAX [Concomitant]

REACTIONS (1)
  - DRUG INEFFECTIVE [None]
